FAERS Safety Report 7644515-1 (Version None)
Quarter: 2011Q3

REPORT INFORMATION
  Report Type: 
  Country: None (occurrence: None)
  Receive Date: 20110729
  Receipt Date: 20110726
  Transmission Date: 20111222
  Serious: Yes (Hospitalization, Other)
  Sender: FDA-Public Use
  Company Number: US-ROCHE-792854

PATIENT
  Sex: Male

DRUGS (3)
  1. PEGASYS [Suspect]
     Dosage: DOSE FORM: INJECTION
     Route: 058
     Dates: start: 20110301
  2. PEGASYS [Suspect]
     Route: 058
     Dates: start: 20110322
  3. RIBAVIRIN [Suspect]
     Dosage: UNCERTAIN OF BRAND DOSE AND FREQUENCY: 1200MG/DAY IN DIVIDED DOSES FOR 24 WEEK
     Route: 048
     Dates: start: 20110301

REACTIONS (4)
  - PLATELET COUNT DECREASED [None]
  - MULTI-ORGAN FAILURE [None]
  - MEDICAL INDUCTION OF COMA [None]
  - HALLUCINATION [None]
